FAERS Safety Report 5046333-X (Version None)
Quarter: 2006Q3

REPORT INFORMATION
  Report Type: 
  Country: None (occurrence: None)
  Receive Date: 20060710
  Receipt Date: 20050819
  Transmission Date: 20061208
  Serious: Yes (Hospitalization, Other)
  Sender: FDA-Public Use
  Company Number: US-MERCK-0508USA03377

PATIENT
  Age: 70 Year
  Sex: Female
  Weight: 52 kg

DRUGS (2)
  1. FOSAMAX [Suspect]
     Indication: OSTEOPOROSIS
     Route: 048
     Dates: start: 20020101, end: 20050201
  2. FOSAMAX [Suspect]
     Route: 048
     Dates: start: 19990101, end: 20020101

REACTIONS (3)
  - GINGIVAL ULCERATION [None]
  - LOWER LIMB FRACTURE [None]
  - OSTEONECROSIS [None]
